FAERS Safety Report 19998798 (Version 1)
Quarter: 2021Q4

REPORT INFORMATION
  Report Type: Other
  Country: GR (occurrence: GR)
  Receive Date: 20211026
  Receipt Date: 20211026
  Transmission Date: 20220304
  Serious: Yes (Hospitalization)
  Sender: FDA-Public Use
  Company Number: GR-BOEHRINGERINGELHEIM-2021-BI-132922

PATIENT
  Age: 82 Year
  Sex: Male

DRUGS (1)
  1. ALTEPLASE [Suspect]
     Active Substance: ALTEPLASE
     Indication: Spinal cord infarction
     Dosage: 0.9MG/KG
     Route: 042

REACTIONS (2)
  - Spinal cord infarction [Unknown]
  - General physical health deterioration [Unknown]
